FAERS Safety Report 5619362-2 (Version None)
Quarter: 2008Q1

REPORT INFORMATION
  Report Type: 
  Country: None (occurrence: None)
  Receive Date: 20080114
  Receipt Date: 20061130
  Transmission Date: 20080703
  Serious: Yes (Hospitalization)
  Sender: FDA-Public Use
  Company Number: A03200607123

PATIENT
  Age: 65 Year
  Sex: Male
  Weight: 86.17 kg

DRUGS (6)
  1. PLAVIX [Suspect]
     Indication: STENT PLACEMENT
     Dosage: 75 MG QD - ORAL
     Route: 048
     Dates: start: 20020101, end: 20061101
  2. ATORVASTATIN [Concomitant]
  3. RAMIPRIL [Concomitant]
  4. METOPROLOL SUCCINATE [Concomitant]
  5. FOLIC ACID [Concomitant]
  6. TRIAMTERENE [Concomitant]

REACTIONS (1)
  - HAEMORRHAGE [None]
